FAERS Safety Report 7956722-9 (Version None)
Quarter: 2011Q4

REPORT INFORMATION
  Report Type: 
  Country: None (occurrence: None)
  Receive Date: 20111205
  Receipt Date: 20111128
  Transmission Date: 20120403
  Serious: Yes (Hospitalization, Other)
  Sender: FDA-Public Use
  Company Number: JP-PFIZER INC-2011236945

PATIENT
  Age: 82 Year
  Sex: Female
  Weight: 32 kg

DRUGS (12)
  1. VFEND [Suspect]
     Indication: BRONCHOPULMONARY ASPERGILLOSIS
     Dosage: 100 MG, 2X/DAY
     Route: 048
     Dates: start: 20110929, end: 20111018
  2. PREDNISOLONE [Concomitant]
     Indication: GLOMERULONEPHRITIS
     Dosage: 15 MG, 1X/DAY
     Route: 048
     Dates: start: 20071001
  3. INCREMIN [Concomitant]
     Indication: IRON DEFICIENCY ANAEMIA
     Dosage: 8 ML, 1X/DAY
     Route: 048
     Dates: start: 20071001
  4. MUCOSOLATE [Concomitant]
     Indication: PRODUCTIVE COUGH
     Dosage: 15 MG, 3X/DAY
     Route: 048
     Dates: start: 20071001
  5. RISEDRONATE SODIUM [Concomitant]
     Indication: OSTEOPOROSIS
     Dosage: 25 MG, 1X/DAY
     Route: 048
     Dates: start: 20071001
  6. RABEPRAZOLE SODIUM [Concomitant]
     Indication: PROPHYLAXIS AGAINST GASTROINTESTINAL ULCER
     Dosage: 10 MG, 1X/DAY
     Route: 048
     Dates: start: 20071001
  7. LASIX [Concomitant]
     Indication: OEDEMA DUE TO RENAL DISEASE
     Dosage: 40 MG, 1X/DAY
     Route: 048
     Dates: start: 20071001
  8. ALFAROL [Concomitant]
     Indication: OSTEOPOROSIS
     Dosage: 0.25 UG, 1X/DAY
     Route: 048
     Dates: start: 20071001
  9. PROMACTA [Concomitant]
     Indication: ZINC DEFICIENCY
     Dosage: 1 G, 2X/DAY
     Route: 048
     Dates: start: 20071001
  10. SULFAMETHOXAZOLE AND TRIMETHOPRIM [Concomitant]
     Indication: ANTIFUNGAL PROPHYLAXIS
     Dosage: UNK
     Route: 048
     Dates: start: 20071001
  11. DEXTROMETHORPHAN HYDROBROMIDE [Concomitant]
     Indication: COUGH
     Dosage: 15 MG, 3X/DAY
     Route: 048
     Dates: start: 20071001
  12. ZOLPIDEM [Concomitant]
     Indication: INSOMNIA
     Dosage: 5 MG, 1X/DAY
     Route: 048
     Dates: start: 20071001

REACTIONS (3)
  - SOMNOLENCE [None]
  - FALL [None]
  - DECREASED APPETITE [None]
